FAERS Safety Report 20574181 (Version 2)
Quarter: 2022Q2

REPORT INFORMATION
  Report Type: Spontaneous
  Country: US (occurrence: US)
  Receive Date: 20220309
  Receipt Date: 20220419
  Transmission Date: 20220721
  Serious: Yes (Other)
  Sender: FDA-Public Use
  Company Number: US-PFIZER INC-202200224188

PATIENT
  Age: 68 Year
  Sex: Female

DRUGS (1)
  1. VFEND [Suspect]
     Active Substance: VORICONAZOLE
     Dosage: 250 MG, 2X/DAY (1 TABLET OF THE 200MG BY MOUTH BID AND TAKE 1 TABLET OF THE 50MG BY MOUTH BID)
     Route: 048

REACTIONS (3)
  - Cerebrovascular accident [Unknown]
  - Lung transplant [Unknown]
  - Incorrect dose administered [Unknown]
